FAERS Safety Report 21654654 (Version 2)
Quarter: 2022Q4

REPORT INFORMATION
  Report Type: Report from Study
  Country: US (occurrence: US)
  Receive Date: 20221129
  Receipt Date: 20221201
  Transmission Date: 20230113
  Serious: Yes (Other)
  Sender: FDA-Public Use
  Company Number: US-SERVIER-S22012178

PATIENT

DRUGS (11)
  1. IVOSIDENIB [Suspect]
     Active Substance: IVOSIDENIB
     Indication: Acute myeloid leukaemia
     Dosage: 500 MG, QD
     Route: 048
     Dates: start: 20221115, end: 20221118
  2. VENCLEXTA [Suspect]
     Active Substance: VENETOCLAX
     Indication: Acute myeloid leukaemia
     Dosage: 50 MG, QD
     Route: 048
     Dates: start: 20221102, end: 20221103
  3. VENCLEXTA [Suspect]
     Active Substance: VENETOCLAX
     Dosage: 50 MG, QD
     Route: 048
     Dates: start: 20221104, end: 20221115
  4. AZACITIDINE [Suspect]
     Active Substance: AZACITIDINE
     Indication: Acute myeloid leukaemia
     Dosage: 125 MG, QD
     Route: 042
     Dates: start: 20221102, end: 20221103
  5. AZACITIDINE [Suspect]
     Active Substance: AZACITIDINE
     Dosage: 125 MG, QD
     Route: 042
     Dates: start: 20221104, end: 20221109
  6. POSACONAZOLE [Suspect]
     Active Substance: POSACONAZOLE
     Indication: Pneumonia fungal
     Dosage: UNK
     Route: 065
     Dates: start: 2022, end: 20221118
  7. ACYCLOVIR [Concomitant]
     Active Substance: ACYCLOVIR
     Indication: Product used for unknown indication
     Dosage: UNK
     Route: 065
  8. AMOXICILLIN\CLAVULANIC ACID [Concomitant]
     Active Substance: AMOXICILLIN\CLAVULANIC ACID
     Indication: Product used for unknown indication
     Dosage: UNK
     Route: 065
  9. NYSTATIN [Concomitant]
     Active Substance: NYSTATIN
     Indication: Product used for unknown indication
     Dosage: UNK
     Route: 065
  10. ALLOPURINOL [Concomitant]
     Active Substance: ALLOPURINOL
     Indication: Product used for unknown indication
     Dosage: UNK
     Route: 065
  11. CHLORHEXIDINE [Concomitant]
     Active Substance: CHLORHEXIDINE
     Indication: Product used for unknown indication
     Dosage: UNK
     Route: 065

REACTIONS (1)
  - Liver function test abnormal [Unknown]

NARRATIVE: CASE EVENT DATE: 20221118
